FAERS Safety Report 16614517 (Version 4)
Quarter: 2019Q4

REPORT INFORMATION
  Report Type: Spontaneous
  Country: US (occurrence: US)
  Receive Date: 20190723
  Receipt Date: 20191223
  Transmission Date: 20200122
  Serious: Yes (Hospitalization)
  Sender: FDA-Public Use
  Company Number: US-PFIZER INC-2019305675

PATIENT
  Age: 59 Year
  Sex: Female

DRUGS (2)
  1. XELJANZ XR [Suspect]
     Active Substance: TOFACITINIB CITRATE
     Dosage: 11 MG, 1X/DAY
     Route: 048
     Dates: start: 201904
  2. XELJANZ XR [Suspect]
     Active Substance: TOFACITINIB CITRATE
     Dosage: 11 MG, 2X/DAY
     Route: 048

REACTIONS (12)
  - Muscle spasms [Unknown]
  - Chronic sinusitis [Unknown]
  - Sinusitis [Unknown]
  - Hypersensitivity [Unknown]
  - Influenza like illness [Unknown]
  - Myalgia [Unknown]
  - Pain in extremity [Unknown]
  - Product dose omission [Unknown]
  - Nasal congestion [Unknown]
  - Myositis [Unknown]
  - Chondropathy [Unknown]
  - Intentional product misuse [Unknown]
